FAERS Safety Report 13479097 (Version 1)
Quarter: 2017Q2

REPORT INFORMATION
  Report Type: Spontaneous
  Country: US (occurrence: US)
  Receive Date: 20170425
  Receipt Date: 20170425
  Transmission Date: 20170830
  Serious: Yes (Disabling, Other)
  Sender: FDA-Public Use
  Company Number: None

PATIENT
  Age: 8 Year
  Sex: Female
  Weight: 39 kg

DRUGS (1)
  1. ESTRACE [Suspect]
     Active Substance: ESTRADIOL
     Indication: RIGID HYMEN
     Dosage: PEA SIZE 2-3 TIMES DAILY, 4-6 WEEKS + EXTRA WEEKS, ON
     Dates: start: 20170108, end: 20170310

REACTIONS (8)
  - Increased appetite [None]
  - Acne [None]
  - Irritability [None]
  - Crying [None]
  - Pruritus [None]
  - Rash erythematous [None]
  - Dry skin [None]
  - Scratch [None]

NARRATIVE: CASE EVENT DATE: 201703
